FAERS Safety Report 4657124-3 (Version None)
Quarter: 2005Q2

REPORT INFORMATION
  Report Type: 
  Country: None (occurrence: None)
  Receive Date: 20050506
  Receipt Date: 20050425
  Transmission Date: 20051028
  Serious: Yes (Death)
  Sender: FDA-Public Use
  Company Number: 2005024066

PATIENT
  Age: 49 Year
  Sex: Male

DRUGS (7)
  1. NEURONTIN [Suspect]
     Indication: ANXIETY
     Dosage: 1200 MG (600 MG, 2 IN 1 D), ORAL
     Route: 048
     Dates: start: 19970101, end: 20040722
  2. NEURONTIN [Suspect]
     Indication: BIPOLAR DISORDER
     Dosage: 1200 MG (600 MG, 2 IN 1 D), ORAL
     Route: 048
     Dates: start: 19970101, end: 20040722
  3. ZOLOFT [Suspect]
     Indication: BIPOLAR DISORDER
     Dosage: ORAL
     Route: 048
  4. ZOLOFT [Suspect]
     Indication: DEPRESSION
     Dosage: ORAL
     Route: 048
  5. ZOLOFT [Suspect]
     Indication: SOCIAL PHOBIA
     Dosage: ORAL
     Route: 048
  6. LIOTHYRONINE SODIUM [Concomitant]
  7. LEVOTHYROXINE SODIUM [Concomitant]

REACTIONS (2)
  - COMPLETED SUICIDE [None]
  - INJURY ASPHYXIATION [None]
